FAERS Safety Report 4532565-3 (Version None)
Quarter: 2004Q4

REPORT INFORMATION
  Report Type: 
  Country: None (occurrence: None)
  Receive Date: 20041206
  Receipt Date: 20040921
  Transmission Date: 20050328
  Serious: No
  Sender: FDA-Public Use
  Company Number: USA040979696

PATIENT
  Age: 33 Year
  Sex: Male
  Weight: 91 kg

DRUGS (3)
  1. CYMBALTA [Suspect]
     Indication: PAIN
     Dosage: 60 MG DAY
     Dates: start: 20040918, end: 20040918
  2. ZOCOR (SIMVASTATIN RATIOPHARM) [Concomitant]
  3. FENTANYL [Concomitant]

REACTIONS (2)
  - ERYTHEMA [None]
  - TREMOR [None]
